FAERS Safety Report 9493190 (Version 1)
Quarter: 2013Q3

REPORT INFORMATION
  Report Type: Spontaneous
  Country: US (occurrence: US)
  Receive Date: 20130902
  Receipt Date: 20130902
  Transmission Date: 20140515
  Serious: Yes (Hospitalization)
  Sender: FDA-Public Use
  Company Number: US-BRISTOL-MYERS SQUIBB COMPANY-19206267

PATIENT
  Age: 7 Decade
  Sex: Female

DRUGS (2)
  1. ELIQUIS [Suspect]
     Indication: ATRIAL FIBRILLATION
  2. ATORVASTATIN [Suspect]

REACTIONS (2)
  - Hepatic function abnormal [Unknown]
  - Gallbladder disorder [Unknown]
